FAERS Safety Report 20802509 (Version 1)
Quarter: 2022Q2

REPORT INFORMATION
  Report Type: Spontaneous
  Country: US (occurrence: None)
  Receive Date: 20220508
  Receipt Date: 20220508
  Transmission Date: 20220721
  Serious: Yes (Life-Threatening, Disabling, Other)
  Sender: FDA-Public Use
  Company Number: None

PATIENT
  Age: 27 Year
  Sex: Male
  Weight: 87.75 kg

DRUGS (12)
  1. ATOMOXETINE [Suspect]
     Active Substance: ATOMOXETINE
     Indication: Attention deficit hyperactivity disorder
     Dates: start: 20220124, end: 20220407
  2. ATOMOXETINE [Suspect]
     Active Substance: ATOMOXETINE
     Indication: Off label use
  3. ADDERALL [Concomitant]
     Active Substance: AMPHETAMINE ASPARTATE\AMPHETAMINE SULFATE\DEXTROAMPHETAMINE SACCHARATE\DEXTROAMPHETAMINE SULFATE
  4. ALBUTEROL [Concomitant]
     Active Substance: ALBUTEROL
  5. DEVICE [Concomitant]
     Active Substance: DEVICE
  6. ASCORBIC ACID [Concomitant]
     Active Substance: ASCORBIC ACID
  7. Vitamins B [Concomitant]
  8. Vitamins D [Concomitant]
  9. Vitamins E [Concomitant]
  10. MAGNESIUM [Concomitant]
     Active Substance: MAGNESIUM
  11. GLUTATHIONE [Concomitant]
     Active Substance: GLUTATHIONE
  12. MELATONIN [Concomitant]
     Active Substance: MELATONIN

REACTIONS (5)
  - Mania [None]
  - Thinking abnormal [None]
  - Off label use [None]
  - Loss of consciousness [None]
  - Hypomania [None]

NARRATIVE: CASE EVENT DATE: 20220124
